FAERS Safety Report 6642414-5 (Version None)
Quarter: 2010Q1

REPORT INFORMATION
  Report Type: 
  Country: None (occurrence: None)
  Receive Date: 20100319
  Receipt Date: 20100312
  Transmission Date: 20100710
  Serious: Yes (Other)
  Sender: FDA-Public Use
  Company Number: DE-ROCHE-691675

PATIENT
  Sex: Male

DRUGS (1)
  1. XELODA [Suspect]
     Dosage: 3 TABLETTS IN THE MORNING AND 3 IN THE EVENING
     Route: 065

REACTIONS (1)
  - RECTAL HAEMORRHAGE [None]
